FAERS Safety Report 7550525-5 (Version None)
Quarter: 2011Q2

REPORT INFORMATION
  Report Type: 
  Country: None (occurrence: None)
  Receive Date: 20110615
  Receipt Date: 20110602
  Transmission Date: 20111010
  Serious: Yes (Death, Hospitalization, Other)
  Sender: FDA-Public Use
  Company Number: US-ELI_LILLY_AND_COMPANY-US201104008048

PATIENT
  Sex: Male

DRUGS (47)
  1. ZYPREXA ZYDIS [Suspect]
     Dosage: 2.5 MG, EACH MORNING
     Route: 048
     Dates: start: 20081031
  2. ZYPREXA ZYDIS [Suspect]
     Dosage: 10 MG, EACH EVENING
     Route: 050
     Dates: start: 20081209
  3. POTASSIUM CHLORIDE [Concomitant]
     Indication: HYPERTENSION
     Dosage: 40 MEQ, EACH MORNING
     Route: 050
     Dates: start: 20081204
  4. JEVITY [Concomitant]
     Dosage: 75 ML, EVERY HOUR
     Dates: start: 20081216
  5. PROTONIX [Concomitant]
     Dosage: 40 MG, BID
     Route: 042
  6. ZYPREXA ZYDIS [Suspect]
     Dosage: 5 MG, EACH MORNING
     Route: 050
     Dates: start: 20081204
  7. ZYPREXA [Suspect]
     Dosage: 5 MG, SINGLE
     Route: 030
     Dates: start: 20081208
  8. NAMENDA [Concomitant]
     Dosage: 5 MG, BID
     Route: 048
     Dates: start: 20081018
  9. LOPRESSOR [Concomitant]
     Indication: HYPERTENSION
     Dosage: 50 MG, BID
     Route: 048
     Dates: start: 20081006
  10. MOM [Concomitant]
     Indication: CONSTIPATION
     Dosage: 30 ML, PRN
     Dates: start: 20081006
  11. MAALOX [Concomitant]
     Indication: DYSPEPSIA
     Dosage: 30 ML, PRN
     Dates: start: 20081006
  12. VALIUM [Concomitant]
     Indication: AGGRESSION
     Dosage: 10 MG, PRN
     Route: 048
     Dates: start: 20081006
  13. LYRICA [Concomitant]
     Dosage: 75 MG, QD
     Route: 048
     Dates: start: 20081021
  14. MIRALAX [Concomitant]
     Dosage: 17 G, QD
     Route: 048
     Dates: start: 20081028
  15. DEPAKOTE [Concomitant]
     Indication: ABNORMAL BEHAVIOUR
     Dosage: 250 MG, EACH MORNING
     Route: 048
     Dates: start: 20081006
  16. COLACE [Concomitant]
     Dosage: 100 MG, BID
     Route: 050
     Dates: start: 20081204
  17. OMEPRAZOLE [Concomitant]
     Indication: GASTROOESOPHAGEAL REFLUX DISEASE
     Dosage: 40 MG, QD
     Route: 050
     Dates: start: 20081204
  18. CEFTIN [Concomitant]
     Dosage: 500 MG, BID
     Dates: start: 20081220, end: 20081230
  19. ZYPREXA ZYDIS [Suspect]
     Indication: AMNESIA
     Dosage: 10 MG, EACH MORNING
     Route: 048
     Dates: start: 20080915
  20. ZYPREXA ZYDIS [Suspect]
     Dosage: 10 MG, EACH EVENING
     Route: 048
     Dates: start: 20080915
  21. ZYPREXA ZYDIS [Suspect]
     Dosage: 5 MG, EVERY 4 HRS
     Route: 048
     Dates: start: 20081006
  22. ZYPREXA ZYDIS [Suspect]
     Dosage: 7.5 MG, EACH EVENING
     Route: 050
     Dates: start: 20081204
  23. ZYPREXA [Suspect]
     Indication: AGITATION
     Dosage: 5 MG, EVERY 4 HRS
     Route: 030
     Dates: start: 20081006
  24. AMBIEN [Concomitant]
     Dosage: 5 MG, EACH EVENING
     Route: 048
     Dates: start: 20080915
  25. COUMADIN [Concomitant]
     Dosage: 2 MG, QD
     Route: 048
     Dates: start: 20081006
  26. DEPAKOTE [Concomitant]
     Dosage: 500 MG, EACH EVENING
     Route: 048
     Dates: start: 20081006
  27. COLACE [Concomitant]
     Indication: CONSTIPATION
     Dosage: 100 MG, QD
     Route: 048
     Dates: start: 20081006
  28. ENOXAPARIN [Concomitant]
     Indication: ATRIAL FIBRILLATION
     Dosage: 70 MG, BID
     Route: 058
     Dates: start: 20081204
  29. ZYPREXA ZYDIS [Suspect]
     Dosage: 5 MG, EACH EVENING
     Route: 048
     Dates: start: 20081030
  30. ZYPREXA ZYDIS [Suspect]
     Dosage: 10 MG, EACH EVENING
     Route: 048
     Dates: start: 20081210
  31. TRAZODONE HCL [Concomitant]
     Indication: INSOMNIA
     Dosage: 50 MG, PRN
     Route: 048
     Dates: start: 20080915
  32. WARFARIN SODIUM [Concomitant]
     Dosage: 5 MG, QD
     Route: 050
     Dates: start: 20081204
  33. ZYPREXA ZYDIS [Suspect]
     Dosage: 5 MG, EACH MORNING
     Route: 048
     Dates: start: 20081006
  34. ZYPREXA ZYDIS [Suspect]
     Dosage: 5 MG, EACH MORNING
     Route: 050
     Dates: start: 20081209
  35. METOPROLOL TARTRATE [Concomitant]
     Dosage: 50 MG, BID
     Route: 048
     Dates: start: 20080915
  36. DULCOLAX [Concomitant]
     Indication: CONSTIPATION
     Dosage: 10 MG, PRN
     Route: 054
     Dates: start: 20081006
  37. VALPROIC ACID [Concomitant]
     Indication: CONVULSION
     Dosage: 25 ML, QD
     Route: 050
     Dates: start: 20081204
  38. NAMENDA [Concomitant]
     Dosage: 10 MG, QD
     Route: 048
     Dates: start: 20080915
  39. LEVAQUIN [Concomitant]
     Indication: UPPER RESPIRATORY TRACT INFECTION
     Dosage: 500 MG, QD
     Route: 048
     Dates: start: 20081006, end: 20081008
  40. ZYPREXA ZYDIS [Suspect]
     Dosage: 10 MG, EACH EVENING
     Route: 048
     Dates: start: 20081006
  41. ZYPREXA ZYDIS [Suspect]
     Dosage: 5 MG, EACH MORNING
     Route: 048
     Dates: start: 20081210
  42. ZYPREXA [Suspect]
     Dosage: 5 MG, BID
     Route: 030
     Dates: start: 20081204
  43. ARICEPT [Concomitant]
     Indication: DEMENTIA
     Dosage: 10 MG, EACH MORNING
     Route: 048
     Dates: start: 20080915
  44. WARFARIN SODIUM [Concomitant]
     Indication: ATRIAL FIBRILLATION
     Dosage: 2 MG, QD
     Route: 048
     Dates: start: 20080915
  45. TYLENOL (CAPLET) [Concomitant]
     Indication: PAIN
     Dosage: 650 MG, EVERY 4 HRS
     Route: 048
     Dates: start: 20081006
  46. LYRICA [Concomitant]
     Dosage: 25 MG, QD
     Route: 048
     Dates: start: 20081022
  47. HYDROCODONE [Concomitant]
     Indication: PAIN
     Dosage: UNK, PRN
     Route: 050
     Dates: start: 20081204

REACTIONS (17)
  - HYPOTENSION [None]
  - HAEMATEMESIS [None]
  - HOSPITALISATION [None]
  - DEHYDRATION [None]
  - HYPOXIA [None]
  - OFF LABEL USE [None]
  - GASTROINTESTINAL HAEMORRHAGE [None]
  - INTERNATIONAL NORMALISED RATIO INCREASED [None]
  - RENAL FAILURE [None]
  - PROTHROMBIN LEVEL INCREASED [None]
  - HAEMOGLOBIN DECREASED [None]
  - INFLUENZA [None]
  - ASPIRATION [None]
  - ANGER [None]
  - RECTAL HAEMORRHAGE [None]
  - METABOLIC ACIDOSIS [None]
  - GASTRIC POLYPS [None]
